FAERS Safety Report 7179918-5 (Version None)
Quarter: 2010Q4

REPORT INFORMATION
  Report Type: 
  Country: None (occurrence: None)
  Receive Date: 20101221
  Receipt Date: 20101216
  Transmission Date: 20110411
  Serious: Yes (Hospitalization, Other)
  Sender: FDA-Public Use
  Company Number: JP-PFIZER INC-2010146272

PATIENT
  Age: 4 Year
  Sex: Female
  Weight: 15.2 kg

DRUGS (5)
  1. GENOTROPIN TC [Suspect]
     Indication: SMALL FOR DATES BABY
     Dosage: 1 MG, WEEKLY
     Route: 058
     Dates: start: 20081127, end: 20081101
  2. GENOTROPIN TC [Suspect]
     Dosage: 3.4 MG, WEEKLY
     Route: 058
     Dates: start: 20091101, end: 20100201
  3. GENOTROPIN TC [Suspect]
     Dosage: 3.8 MG, WEEKLY
     Route: 058
     Dates: start: 20100201, end: 20100901
  4. GENOTROPIN TC [Suspect]
     Dosage: 1 MG, WEEKLY
     Route: 058
     Dates: start: 20100901, end: 20101001
  5. GENOTROPIN TC [Suspect]
     Dosage: UNK
     Dates: start: 20101001, end: 20101110

REACTIONS (3)
  - CONDITION AGGRAVATED [None]
  - OSTEOCHONDROSIS [None]
  - TONSILLAR HYPERTROPHY [None]
